FAERS Safety Report 17190629 (Version 1)
Quarter: 2019Q4

REPORT INFORMATION
  Report Type: Spontaneous
  Country: US (occurrence: US)
  Receive Date: 20191223
  Receipt Date: 20191223
  Transmission Date: 20200122
  Serious: No
  Sender: FDA-Public Use
  Company Number: US-BAYER-2019-233030

PATIENT
  Age: 70 Year
  Sex: Female

DRUGS (1)
  1. CLARITIN [Suspect]
     Active Substance: LORATADINE
     Indication: SINUS DISORDER
     Dosage: 2 DF
     Route: 048
     Dates: start: 20191218

REACTIONS (2)
  - Product use in unapproved indication [None]
  - Extra dose administered [Unknown]

NARRATIVE: CASE EVENT DATE: 20191218
